FAERS Safety Report 17262396 (Version 1)
Quarter: 2020Q1

REPORT INFORMATION
  Report Type: Spontaneous
  Country: US (occurrence: US)
  Receive Date: 20200110
  Receipt Date: 20200110
  Transmission Date: 20200409
  Serious: Yes (Hospitalization)
  Sender: FDA-Public Use
  Company Number: None

PATIENT
  Age: 79 Year
  Sex: Male
  Weight: 82 kg

DRUGS (1)
  1. GENTAMICIN 400MG IN SODIUM CHLORIDE 0.9% 100ML IVPB [Suspect]
     Active Substance: GENTAMICIN
     Indication: URINARY TRACT INFECTION
     Dosage: ?          OTHER FREQUENCY:EVERY 48 HOURS;?
     Route: 041

REACTIONS (4)
  - Mental status changes [None]
  - Incoherent [None]
  - Toxic encephalopathy [None]
  - Hallucination, visual [None]

NARRATIVE: CASE EVENT DATE: 20200105
